FAERS Safety Report 8945908 (Version 5)
Quarter: 2013Q2

REPORT INFORMATION
  Report Type: Spontaneous
  Country: JP (occurrence: JP)
  Receive Date: 20121205
  Receipt Date: 20130429
  Transmission Date: 20140414
  Serious: Yes (Disabling)
  Sender: FDA-Public Use
  Company Number: JP-ASTRAZENECA-2012SE90499

PATIENT
  Age: 51 Year
  Sex: Female
  Weight: 40 kg

DRUGS (18)
  1. NEXIUM [Suspect]
     Indication: PROPHYLAXIS AGAINST GASTROINTESTINAL ULCER
     Route: 048
     Dates: start: 20121030, end: 20121121
  2. OMEPRAL [Suspect]
     Indication: PROPHYLAXIS AGAINST GASTROINTESTINAL ULCER
     Route: 042
     Dates: start: 20121020, end: 20121025
  3. OMEPRAL [Suspect]
     Indication: PROPHYLAXIS AGAINST GASTROINTESTINAL ULCER
     Route: 041
     Dates: start: 20121122, end: 20121123
  4. SEROQUEL [Suspect]
     Indication: ANXIETY
     Route: 048
     Dates: start: 20121116
  5. NORVASC (NON AZ PRODUCT) [Suspect]
     Indication: HYPERTENSION
     Route: 048
     Dates: start: 20121020
  6. TAKEPRON [Concomitant]
     Indication: PROPHYLAXIS AGAINST GASTROINTESTINAL ULCER
     Route: 048
     Dates: start: 20121026, end: 20121029
  7. EXCEGRAN [Concomitant]
     Indication: EPILEPSY
     Route: 048
     Dates: start: 20121025
  8. ALEVIATIN [Concomitant]
     Indication: EPILEPSY
     Route: 041
     Dates: start: 20121020, end: 20121026
  9. ERIL [Concomitant]
     Indication: VASOSPASM
     Route: 041
     Dates: start: 20121022, end: 20121105
  10. RADICUT [Concomitant]
     Indication: CEREBRAL ISCHAEMIA
     Route: 041
     Dates: start: 20121029, end: 20121111
  11. OZAGREL [Concomitant]
     Indication: VASOSPASM
     Route: 041
     Dates: start: 20121029, end: 20121107
  12. RASENAZOLIN [Concomitant]
     Indication: INFECTION PROPHYLAXIS
     Route: 041
     Dates: start: 20121020, end: 20121021
  13. ROHYPNOL [Concomitant]
     Route: 048
  14. SOLACET F [Concomitant]
     Route: 041
  15. FENTANYL [Concomitant]
  16. ULTIVA [Concomitant]
     Route: 042
  17. ELNEOPA NO.2 [Concomitant]
     Route: 041
  18. HEPARIN SODIUM [Concomitant]

REACTIONS (1)
  - Blindness [Not Recovered/Not Resolved]
